FAERS Safety Report 23289089 (Version 1)
Quarter: 2023Q4

REPORT INFORMATION
  Report Type: Spontaneous
  Country: US (occurrence: US)
  Receive Date: 20231212
  Receipt Date: 20231212
  Transmission Date: 20240110
  Serious: Yes (Death, Other)
  Sender: FDA-Public Use
  Company Number: US-BRISTOL-MYERS SQUIBB COMPANY-2023-177137

PATIENT
  Age: 68 Year
  Sex: Female

DRUGS (1)
  1. THALOMID [Suspect]
     Active Substance: THALIDOMIDE
     Indication: Gastrointestinal angiodysplasia
     Dosage: NIGHTLY
     Route: 048
     Dates: start: 202308

REACTIONS (3)
  - Cardiac arrest [Fatal]
  - Anaemia [Fatal]
  - Off label use [Unknown]

NARRATIVE: CASE EVENT DATE: 20231029
